FAERS Safety Report 7766021-6 (Version None)
Quarter: 2011Q3

REPORT INFORMATION
  Report Type: 
  Country: None (occurrence: None)
  Receive Date: 20110921
  Receipt Date: 20110913
  Transmission Date: 20111222
  Serious: Yes (Hospitalization)
  Sender: FDA-Public Use
  Company Number: US-BAYER-200943305NA

PATIENT
  Age: 30 Year
  Sex: Female

DRUGS (5)
  1. ALLEGRA [Concomitant]
  2. AVELOX [Concomitant]
  3. SINGULAIR [Concomitant]
  4. YASMIN [Suspect]
     Indication: PRODUCT USED FOR UNKNOWN INDICATION
     Dosage: UNK
     Dates: start: 20060601, end: 20060701
  5. YAZ [Suspect]
     Indication: PRODUCT USED FOR UNKNOWN INDICATION
     Dosage: UNK
     Dates: start: 20060701, end: 20070127

REACTIONS (8)
  - PULMONARY INFARCTION [None]
  - PAIN [None]
  - PULMONARY EMBOLISM [None]
  - SWELLING [None]
  - CHEST PAIN [None]
  - FEAR [None]
  - ASTHENIA [None]
  - HYPOAESTHESIA [None]
